FAERS Safety Report 15706317 (Version 3)
Quarter: 2019Q1

REPORT INFORMATION
  Report Type: Spontaneous
  Country: GB (occurrence: GB)
  Receive Date: 20181210
  Receipt Date: 20190207
  Transmission Date: 20190417
  Serious: Yes (Other)
  Sender: FDA-Public Use
  Company Number: GB-BRACCO-2018GB06276

PATIENT
  Age: 49 Year
  Sex: Male

DRUGS (2)
  1. SONOVUE [Suspect]
     Active Substance: SULFUR HEXAFLUORIDE
     Indication: STRESS ECHOCARDIOGRAM
     Dosage: UNK UNK, SINGLE
  2. DOBUTAMINE [Concomitant]
     Active Substance: DOBUTAMINE\DOBUTAMINE HYDROCHLORIDE
     Indication: STRESS ECHOCARDIOGRAM

REACTIONS (3)
  - Hypotension [Unknown]
  - Bradycardia [Recovered/Resolved]
  - Acute coronary syndrome [Recovering/Resolving]
